FAERS Safety Report 9100514 (Version 1)
Quarter: 2013Q1

REPORT INFORMATION
  Report Type: Spontaneous
  Country: ES (occurrence: ES)
  Receive Date: 20130215
  Receipt Date: 20130215
  Transmission Date: 20140127
  Serious: Yes (Other)
  Sender: FDA-Public Use
  Company Number: ES-BAYER-2013-018004

PATIENT
  Age: 23 Year
  Sex: Female
  Weight: 48 kg

DRUGS (1)
  1. ACTIRA [Suspect]
     Indication: SINUSITIS
     Route: 065
     Dates: start: 20120620, end: 20120627

REACTIONS (4)
  - Dizziness [Recovered/Resolved]
  - Headache [Recovered/Resolved]
  - Amenorrhoea [Recovered/Resolved]
  - Nausea [Recovered/Resolved]
